FAERS Safety Report 12285308 (Version 2)
Quarter: 2016Q2

REPORT INFORMATION
  Report Type: Report from Study
  Country: BR (occurrence: BR)
  Receive Date: 20160420
  Receipt Date: 20160503
  Transmission Date: 20160815
  Serious: Yes (Death, Other)
  Sender: FDA-Public Use
  Company Number: PHHY2016BR052316

PATIENT
  Sex: Male
  Weight: 102 kg

DRUGS (3)
  1. LEVOTHYROXINE. [Concomitant]
     Active Substance: LEVOTHYROXINE
     Indication: THYROID HORMONES DECREASED
     Dosage: 1 DF, QD
     Route: 048
     Dates: start: 201602, end: 201603
  2. EXELON PATCH [Suspect]
     Active Substance: RIVASTIGMINE
     Indication: DEMENTIA
  3. EXELON PATCH [Suspect]
     Active Substance: RIVASTIGMINE
     Indication: AGGRESSION
     Dosage: 4.6 MG [PATCH 5 (CM2)], QD
     Route: 062
     Dates: start: 201601, end: 201603

REACTIONS (3)
  - Dysphagia [Not Recovered/Not Resolved]
  - Pneumonia [Fatal]
  - Product use issue [Unknown]

NARRATIVE: CASE EVENT DATE: 201602
